FAERS Safety Report 4629456-6 (Version None)
Quarter: 2005Q2

REPORT INFORMATION
  Report Type: 
  Country: None (occurrence: None)
  Receive Date: 20050405
  Receipt Date: 20050323
  Transmission Date: 20051028
  Serious: Yes (Life-Threatening)
  Sender: FDA-Public Use
  Company Number: 230002M05ESP

PATIENT
  Age: 46 Year
  Sex: Female

DRUGS (1)
  1. REBIF [Suspect]
     Dosage: 132 MCG, 1 IN 1 WEEKS
     Dates: start: 20021001

REACTIONS (2)
  - AGRANULOCYTOSIS [None]
  - STOMATITIS [None]
